FAERS Safety Report 7943420-0 (Version None)
Quarter: 2011Q4

REPORT INFORMATION
  Report Type: 
  Country: None (occurrence: None)
  Receive Date: 20111128
  Receipt Date: 20110714
  Transmission Date: 20120403
  Serious: Yes (Other)
  Sender: FDA-Public Use
  Company Number: US-TEVA-298765USA

PATIENT
  Sex: Female

DRUGS (2)
  1. PACLITAXEL [Suspect]
     Indication: OVARIAN CANCER METASTATIC
  2. CARBOPLATIN [Suspect]
     Indication: OVARIAN CANCER METASTATIC

REACTIONS (1)
  - OVARIAN CANCER STAGE IV [None]
